FAERS Safety Report 25837260 (Version 1)
Quarter: 2025Q3

REPORT INFORMATION
  Report Type: Spontaneous
  Country: CN (occurrence: CN)
  Receive Date: 20250923
  Receipt Date: 20250923
  Transmission Date: 20251021
  Serious: Yes (Other)
  Sender: ELI LILLY AND COMPANY
  Company Number: CN-ELI_LILLY_AND_COMPANY-CN202509013051

PATIENT
  Sex: Female

DRUGS (3)
  1. ABEMACICLIB [Suspect]
     Active Substance: ABEMACICLIB
     Indication: Product used for unknown indication
     Route: 048
  2. ABEMACICLIB [Suspect]
     Active Substance: ABEMACICLIB
     Route: 048
     Dates: start: 202508
  3. ABEMACICLIB [Suspect]
     Active Substance: ABEMACICLIB
     Route: 048
     Dates: start: 20250909

REACTIONS (15)
  - Hypertension [Unknown]
  - Abdominal pain upper [Unknown]
  - Hypotension [Unknown]
  - Toothache [Unknown]
  - Gingival swelling [Unknown]
  - Noninfective gingivitis [Unknown]
  - COVID-19 [Unknown]
  - Dizziness [Unknown]
  - Plicated tongue [Unknown]
  - Taste disorder [Unknown]
  - Oral mucosal roughening [Unknown]
  - Weight decreased [Unknown]
  - Mouth ulceration [Unknown]
  - Vomiting [Unknown]
  - Diarrhoea [Unknown]

NARRATIVE: CASE EVENT DATE: 20250701
